FAERS Safety Report 17153774 (Version 1)
Quarter: 2019Q4

REPORT INFORMATION
  Report Type: Spontaneous
  Country: US (occurrence: US)
  Receive Date: 20191213
  Receipt Date: 20191213
  Transmission Date: 20200122
  Serious: No
  Sender: FDA-Public Use
  Company Number: US-TEVA-2019-US-1148466

PATIENT
  Age: 59 Year
  Sex: Female
  Weight: 64.4 kg

DRUGS (4)
  1. ALBUTEROL SULFATE HFA [Suspect]
     Active Substance: ALBUTEROL SULFATE
     Indication: PNEUMONIA
     Dosage: 1-2 PUFFS EVERY 4 HOURS FOR WHEN YOU GET SICK
     Route: 065
     Dates: start: 20191127
  2. PREDNISONE. [Concomitant]
     Active Substance: PREDNISONE
  3. FLOVENT [Concomitant]
     Active Substance: FLUTICASONE PROPIONATE
  4. PROMETHAZINE-DM COUGH SYRUP [Concomitant]

REACTIONS (2)
  - Fall [Unknown]
  - Drug screen false positive [Unknown]

NARRATIVE: CASE EVENT DATE: 20191130
